FAERS Safety Report 4924282-2 (Version None)
Quarter: 2006Q1

REPORT INFORMATION
  Report Type: 
  Country: None (occurrence: None)
  Receive Date: 20060227
  Receipt Date: 20060211
  Transmission Date: 20060701
  Serious: Yes (Hospitalization)
  Sender: FDA-Public Use
  Company Number: MX-AVENTIS-200611354GDDC

PATIENT
  Age: 22 Year
  Sex: Female
  Weight: 70 kg

DRUGS (4)
  1. KETEK [Suspect]
     Indication: SINUSITIS
     Route: 048
     Dates: start: 20060206, end: 20060210
  2. SENSIBIT [Concomitant]
     Indication: SINUSITIS
     Route: 048
     Dates: start: 20060201, end: 20060201
  3. ACETAMINOPHEN [Concomitant]
     Indication: PYREXIA
     Route: 048
     Dates: start: 20060206, end: 20060210
  4. SENSIBIT D [Concomitant]
     Indication: SINUSITIS
     Route: 048
     Dates: start: 20060206, end: 20060210

REACTIONS (7)
  - CHOLURIA [None]
  - FATIGUE [None]
  - FOOD INTOLERANCE [None]
  - HEPATITIS A [None]
  - PYREXIA [None]
  - TRANSAMINASES INCREASED [None]
  - VOMITING [None]
